FAERS Safety Report 23159989 (Version 1)
Quarter: 2023Q4

REPORT INFORMATION
  Report Type: Spontaneous
  Country: US (occurrence: US)
  Receive Date: 20231108
  Receipt Date: 20231108
  Transmission Date: 20240110
  Serious: No
  Sender: FDA-Public Use
  Company Number: US-TEVA-2023-US-2939635

PATIENT
  Age: 63 Year
  Sex: Female

DRUGS (1)
  1. CLONAZEPAM [Suspect]
     Active Substance: CLONAZEPAM
     Indication: Anxiety
     Dosage: 2 DOSAGE FORMS DAILY;
     Route: 065

REACTIONS (3)
  - Drug ineffective [Unknown]
  - Anxiety [Unknown]
  - Fatigue [Unknown]

NARRATIVE: CASE EVENT DATE: 20231001
